FAERS Safety Report 8998734 (Version 1)
Quarter: 2013Q1

REPORT INFORMATION
  Report Type: Spontaneous
  Country: US (occurrence: US)
  Receive Date: 20130103
  Receipt Date: 20130103
  Transmission Date: 20140127
  Serious: No
  Sender: FDA-Public Use
  Company Number: US-PFIZER INC-2012331093

PATIENT
  Age: 51 Year
  Sex: Male

DRUGS (4)
  1. FLUOROURACIL [Suspect]
     Indication: COLORECTAL CANCER METASTATIC
     Dosage: 4 CYCLES
     Route: 041
  2. IRINOTECAN HCL [Suspect]
     Indication: COLORECTAL CANCER METASTATIC
     Dosage: 4 CYCLES
     Route: 041
  3. FOLINIC ACID [Suspect]
     Indication: COLORECTAL CANCER METASTATIC
     Dosage: 4 CYCLES
     Route: 041
  4. ZALTRAP [Suspect]
     Indication: COLORECTAL CANCER METASTATIC
     Dosage: 4 CYCLES
     Route: 041

REACTIONS (2)
  - Disease progression [Unknown]
  - Colorectal cancer metastatic [Unknown]
